FAERS Safety Report 8561556-0 (Version None)
Quarter: 2012Q3

REPORT INFORMATION
  Report Type: 
  Country: None (occurrence: None)
  Receive Date: 20120802
  Receipt Date: 20120731
  Transmission Date: 20120928
  Serious: Yes (Hospitalization)
  Sender: FDA-Public Use
  Company Number: PHHY2012FR063256

PATIENT
  Age: 61 Year
  Sex: Male

DRUGS (1)
  1. AMOXICILLIN [Suspect]

REACTIONS (10)
  - HYPERTHERMIA [None]
  - EOSINOPHILIA [None]
  - EPSTEIN-BARR VIRUS INFECTION [None]
  - HUMAN HERPESVIRUS 7 INFECTION [None]
  - DRUG RASH WITH EOSINOPHILIA AND SYSTEMIC SYMPTOMS [None]
  - RENAL FAILURE [None]
  - SWELLING FACE [None]
  - LYMPHADENOPATHY [None]
  - RASH MACULO-PAPULAR [None]
  - RASH GENERALISED [None]
